FAERS Safety Report 4291732-7 (Version None)
Quarter: 2004Q1

REPORT INFORMATION
  Report Type: 
  Country: None (occurrence: None)
  Receive Date: 20040211
  Receipt Date: 20030124
  Transmission Date: 20041129
  Serious: No
  Sender: FDA-Public Use
  Company Number: US-GLAXOSMITHKLINE-A0393970A

PATIENT
  Age: 70 Year
  Sex: Female

DRUGS (3)
  1. IMITREX [Suspect]
     Indication: MIGRAINE
     Route: 058
  2. BLOOD PRESSURE MEDICATION [Concomitant]
  3. ANTIDEPRESSANT [Concomitant]

REACTIONS (2)
  - CONTUSION [None]
  - PAIN [None]
